FAERS Safety Report 9838645 (Version 1)
Quarter: 2014Q1

REPORT INFORMATION
  Report Type: Spontaneous
  Country: FR (occurrence: None)
  Receive Date: 20140116
  Receipt Date: 20140116
  Transmission Date: 20141002
  Serious: Yes (Hospitalization, Other)
  Sender: FDA-Public Use
  Company Number: 2014000002

PATIENT
  Age: 65 Year
  Sex: Male

DRUGS (11)
  1. ACEON [Suspect]
     Indication: PRODUCT USED FOR UNKNOWN INDICATION
     Route: 048
     Dates: start: 20120601, end: 20131002
  2. OGASTORO (LANSOPRAZOLE), 30MG [Concomitant]
  3. KARDEGIC (ACETYLSALICYLATE LYSINE), 75MG [Concomitant]
  4. TEMERIT (NEBIVOLOL HYDROCHLORIDE) [Concomitant]
  5. LOXEN (NICARDIPINE HYDROCHLORIDE) SLOW RELEASE [Concomitant]
  6. LOXEN (NICARDIPINE HYDROCHLORIDE) SLOW RELEASE [Concomitant]
  7. LONOTEN (MINOXIDIL) [Concomitant]
  8. STILNOX (ZOLPIDEM TARTRATE) [Concomitant]
  9. RENVELA (SEVELAMER CARBONATE) [Concomitant]
  10. KAYEXALATE (SODIUM POLYSTYRENE SULFONATE) [Concomitant]
  11. PARACETAMOL (PARACETAMOL) [Concomitant]

REACTIONS (6)
  - Laryngeal oedema [None]
  - Acute pulmonary oedema [None]
  - Vocal cord paralysis [None]
  - Laryngeal dyspnoea [None]
  - Respiratory failure [None]
  - Staphylococcus test positive [None]
